FAERS Safety Report 16257968 (Version 1)
Quarter: 2019Q2

REPORT INFORMATION
  Report Type: Spontaneous
  Country: BE (occurrence: BE)
  Receive Date: 20190430
  Receipt Date: 20190430
  Transmission Date: 20190711
  Serious: Yes (Other)
  Sender: FDA-Public Use
  Company Number: BE-TAKEDA-2019TUS025430

PATIENT
  Age: 57 Year
  Sex: Female
  Weight: 57.8 kg

DRUGS (1)
  1. ENTYVIO [Suspect]
     Active Substance: VEDOLIZUMAB
     Indication: CROHN^S DISEASE
     Dosage: 300 MILLIGRAM, Q4WEEKS
     Route: 042
     Dates: start: 20160504

REACTIONS (2)
  - Therapeutic reaction time decreased [Unknown]
  - Intestinal resection [Unknown]

NARRATIVE: CASE EVENT DATE: 20180112
